FAERS Safety Report 16385101 (Version 1)
Quarter: 2019Q2

REPORT INFORMATION
  Report Type: Spontaneous
  Country: GB (occurrence: GB)
  Receive Date: 20190603
  Receipt Date: 20190603
  Transmission Date: 20190711
  Serious: Yes (Hospitalization, Disabling, Other)
  Sender: FDA-Public Use
  Company Number: GB-TEVA-2019-GB-1057107

PATIENT
  Age: 33 Year
  Sex: Female
  Weight: 91.16 kg

DRUGS (7)
  1. DIAZEPAM. [Concomitant]
     Active Substance: DIAZEPAM
     Route: 065
  2. HALOPERIDOL. [Suspect]
     Active Substance: HALOPERIDOL
     Indication: PSYCHOTIC DISORDER
     Dosage: 75MILLIGRAM FOR EVERY 2 WEEKS THURSDAYS
     Route: 051
     Dates: start: 20180117, end: 201903
  3. PREGABALIN. [Concomitant]
     Active Substance: PREGABALIN
     Route: 065
  4. FLUOXETINE [Concomitant]
     Active Substance: FLUOXETINE HYDROCHLORIDE
     Route: 065
  5. ARIPIPRAZOLE. [Concomitant]
     Active Substance: ARIPIPRAZOLE
     Route: 065
  6. LITHIUM CARBONATE. [Concomitant]
     Active Substance: LITHIUM CARBONATE
     Route: 065
  7. OMEPRAZOLE. [Concomitant]
     Active Substance: OMEPRAZOLE
     Route: 065

REACTIONS (9)
  - Feeling abnormal [Not Recovered/Not Resolved]
  - Alopecia [Recovering/Resolving]
  - Amnesia [Unknown]
  - Disturbance in attention [Unknown]
  - Abnormal weight gain [Unknown]
  - Vision blurred [Unknown]
  - Emotional poverty [Unknown]
  - Incorrect dose administered [Unknown]
  - Loss of libido [Unknown]

NARRATIVE: CASE EVENT DATE: 20180117
